FAERS Safety Report 25425185 (Version 1)
Quarter: 2025Q2

REPORT INFORMATION
  Report Type: Spontaneous
  Country: US (occurrence: US)
  Receive Date: 20250611
  Receipt Date: 20250611
  Transmission Date: 20250716
  Serious: No
  Sender: GE HEALTHCARE
  Company Number: US-GE HEALTHCARE-2025CSU007401

PATIENT
  Sex: Female

DRUGS (1)
  1. CLARISCAN [Suspect]
     Active Substance: GADOTERATE MEGLUMINE
     Indication: Magnetic resonance imaging
     Route: 065

REACTIONS (5)
  - Eye irritation [Recovering/Resolving]
  - Flushing [Unknown]
  - Rhinorrhoea [Unknown]
  - Sneezing [Recovering/Resolving]
  - Urticaria [Unknown]
